FAERS Safety Report 4367251-6 (Version None)
Quarter: 2004Q2

REPORT INFORMATION
  Report Type: 
  Country: None (occurrence: None)
  Receive Date: 20040524
  Receipt Date: 20040513
  Transmission Date: 20050107
  Serious: Yes (Hospitalization, Other)
  Sender: FDA-Public Use
  Company Number: 2004213581US

PATIENT
  Age: 11 Year
  Sex: Female

DRUGS (3)
  1. FLAGYL [Suspect]
     Dosage: 250 MG, TID
     Dates: start: 20000101
  2. DELTASONE [Suspect]
     Dosage: 40 MG, DAILY
  3. MERCAPTOPURINE [Suspect]
     Dosage: 0.9 MG/KG, QD

REACTIONS (5)
  - HERPES SIMPLEX [None]
  - HYPERGLYCAEMIA [None]
  - PYREXIA [None]
  - STOMATITIS [None]
  - VAGINITIS [None]
